FAERS Safety Report 8381130-9 (Version None)
Quarter: 2012Q2

REPORT INFORMATION
  Report Type: 
  Country: None (occurrence: None)
  Receive Date: 20120523
  Receipt Date: 20120511
  Transmission Date: 20120825
  Serious: Yes (Other)
  Sender: FDA-Public Use
  Company Number: US-ELI_LILLY_AND_COMPANY-US201203004222

PATIENT
  Age: 45 Year
  Sex: Male

DRUGS (2)
  1. ALIMTA [Suspect]
     Indication: MESOTHELIOMA
     Dosage: 1000 MG/M2, UNKNOWN
     Dates: start: 20111101
  2. CARBOPLATIN [Concomitant]
     Dosage: UNK
     Dates: start: 20111101

REACTIONS (2)
  - INFECTION [None]
  - RENAL FAILURE [None]
